FAERS Safety Report 13544006 (Version 2)
Quarter: 2017Q2

REPORT INFORMATION
  Report Type: Spontaneous
  Country: US (occurrence: US)
  Receive Date: 20170515
  Receipt Date: 20170612
  Transmission Date: 20170830
  Serious: No
  Sender: FDA-Public Use
  Company Number: US-AMGEN-USASP2017069593

PATIENT
  Age: 57 Year
  Sex: Female

DRUGS (19)
  1. FLOVENT [Concomitant]
     Active Substance: FLUTICASONE PROPIONATE
  2. LORAZEPAM. [Concomitant]
     Active Substance: LORAZEPAM
  3. BELSOMRA [Concomitant]
     Active Substance: SUVOREXANT
  4. MELOXICAM. [Concomitant]
     Active Substance: MELOXICAM
  5. PROAIR HFA [Concomitant]
     Active Substance: ALBUTEROL SULFATE
  6. METAXALONE. [Concomitant]
     Active Substance: METAXALONE
  7. APAP W/HYDROCODONE [Concomitant]
     Active Substance: ACETAMINOPHEN\HYDROCODONE
  8. SONATA [Concomitant]
     Active Substance: ZALEPLON
  9. FERROUS SULFATE. [Concomitant]
     Active Substance: FERROUS SULFATE
  10. RANITIDINE HYDROCHLORIDE. [Concomitant]
     Active Substance: RANITIDINE HYDROCHLORIDE
  11. ZOLPIDEM TARTRATE. [Concomitant]
     Active Substance: ZOLPIDEM TARTRATE
  12. LAMOTRIGINE. [Concomitant]
     Active Substance: LAMOTRIGINE
  13. SUMATRIPTAN SUCCINATE. [Concomitant]
     Active Substance: SUMATRIPTAN SUCCINATE
  14. ENBREL [Suspect]
     Active Substance: ETANERCEPT
     Indication: RHEUMATOID ARTHRITIS
     Dosage: 50 MG, QWK
     Route: 058
  15. VITAMIN D3 [Concomitant]
     Active Substance: CHOLECALCIFEROL
  16. OMEPRAZOLE. [Concomitant]
     Active Substance: OMEPRAZOLE
  17. LOSARTAN POTASSIUM. [Concomitant]
     Active Substance: LOSARTAN POTASSIUM
  18. VITAMIN B12 [Concomitant]
     Active Substance: CYANOCOBALAMIN
  19. PREDNISONE. [Concomitant]
     Active Substance: PREDNISONE

REACTIONS (6)
  - Drug ineffective [Unknown]
  - Arthralgia [Unknown]
  - Joint swelling [Unknown]
  - Musculoskeletal disorder [Unknown]
  - Inflammation [Unknown]
  - Joint stiffness [Unknown]
